FAERS Safety Report 13673689 (Version 3)
Quarter: 2017Q3

REPORT INFORMATION
  Report Type: Spontaneous
  Country: US (occurrence: US)
  Receive Date: 20170621
  Receipt Date: 20170829
  Transmission Date: 20171127
  Serious: Yes (Hospitalization)
  Sender: FDA-Public Use
  Company Number: US-ASTRAZENECA-2017SE62667

PATIENT
  Age: 1113 Month
  Sex: Female
  Weight: 81.6 kg

DRUGS (3)
  1. ALBUTEROL. [Concomitant]
     Active Substance: ALBUTEROL
     Indication: DYSPNOEA
     Dosage: TWO TIMES A DAY
     Route: 055
  2. SYMBICORT [Suspect]
     Active Substance: BUDESONIDE\FORMOTEROL FUMARATE DIHYDRATE
     Indication: LUNG DISORDER
     Dosage: 80/4.5 UG, 1 PUFF TWICE A DAY
     Route: 055
     Dates: start: 2016
  3. SYMBICORT [Suspect]
     Active Substance: BUDESONIDE\FORMOTEROL FUMARATE DIHYDRATE
     Indication: DYSPNOEA
     Dosage: 80/4.5 UG, 1 PUFF TWICE A DAY
     Route: 055
     Dates: start: 2016

REACTIONS (7)
  - Dyspnoea [Unknown]
  - Product use issue [Unknown]
  - Chronic obstructive pulmonary disease [Unknown]
  - Product quality issue [Unknown]
  - Drug dose omission [Unknown]
  - Product packaging quantity issue [Unknown]
  - Off label use [Unknown]

NARRATIVE: CASE EVENT DATE: 201610
